FAERS Safety Report 7455816-4 (Version None)
Quarter: 2011Q2

REPORT INFORMATION
  Report Type: 
  Country: None (occurrence: None)
  Receive Date: 20110503
  Receipt Date: 20110422
  Transmission Date: 20111010
  Serious: Yes (Hospitalization)
  Sender: FDA-Public Use
  Company Number: PHHY2011IT32938

PATIENT
  Sex: Female

DRUGS (6)
  1. STILNOX [Suspect]
     Dosage: UNK UKN, UNK
     Dates: start: 20110330, end: 20110330
  2. ASPIRIN [Suspect]
     Dosage: UNK UKN, UNK
     Dates: start: 20110330, end: 20110330
  3. TEGRETOL [Suspect]
     Dosage: UNK UKN, UNK
     Dates: start: 20110330, end: 20110330
  4. ANXIOLYTICS [Concomitant]
     Dosage: UNK UKN, UNK
  5. ORAP [Suspect]
     Dosage: UNK UKN, UNK
     Dates: start: 20110330, end: 20110330
  6. GABAPENTIN [Suspect]
     Dosage: UNK UKN, UNK
     Dates: start: 20110330, end: 20110330

REACTIONS (7)
  - OVERDOSE [None]
  - INCREASED BRONCHIAL SECRETION [None]
  - SELF INJURIOUS BEHAVIOUR [None]
  - COMA [None]
  - SEDATION [None]
  - HYPOXIA [None]
  - PSYCHOTIC DISORDER [None]
